FAERS Safety Report 9477173 (Version 1)
Quarter: 2013Q3

REPORT INFORMATION
  Report Type: Spontaneous
  Country: FR (occurrence: FR)
  Receive Date: 20130826
  Receipt Date: 20130826
  Transmission Date: 20140515
  Serious: Yes (Other)
  Sender: FDA-Public Use
  Company Number: FR-PFIZER INC-2013241864

PATIENT
  Age: 34 Year
  Sex: Male

DRUGS (2)
  1. ARACYTINE [Suspect]
     Dosage: UNK
  2. VANCOMYCIN [Suspect]
     Dosage: UNK

REACTIONS (1)
  - Toxic skin eruption [Unknown]
